FAERS Safety Report 5022937-5 (Version None)
Quarter: 2006Q2

REPORT INFORMATION
  Report Type: 
  Country: None (occurrence: None)
  Receive Date: 20060426
  Receipt Date: 20060313
  Transmission Date: 20061013
  Serious: Yes (Other)
  Sender: FDA-Public Use
  Company Number: 2006037911

PATIENT
  Sex: Male
  Weight: 56.6996 kg

DRUGS (4)
  1. LYRICA [Suspect]
     Indication: NEURALGIA
     Dosage: 75 MG, ORAL
     Route: 048
     Dates: start: 20060307
  2. CODEINE SUL TAB [Concomitant]
  3. MAPROTILINE [Concomitant]
  4. ASPIRIN [Concomitant]

REACTIONS (1)
  - ABDOMINAL PAIN [None]
